FAERS Safety Report 4746182-3 (Version None)
Quarter: 2005Q3

REPORT INFORMATION
  Report Type: 
  Country: None (occurrence: None)
  Receive Date: 20050816
  Receipt Date: 20050811
  Transmission Date: 20060218
  Serious: Yes (Hospitalization)
  Sender: FDA-Public Use
  Company Number: US-MERCK-0508USA02053

PATIENT
  Age: 62 Year
  Sex: Male

DRUGS (1)
  1. PROPECIA [Suspect]
     Indication: HAIR TRANSPLANT
     Route: 048
     Dates: start: 20050101, end: 20050804

REACTIONS (1)
  - MYOCARDIAL INFARCTION [None]
